FAERS Safety Report 4340509-2 (Version None)
Quarter: 2004Q2

REPORT INFORMATION
  Report Type: 
  Country: None (occurrence: None)
  Receive Date: 20040414
  Receipt Date: 20040408
  Transmission Date: 20050107
  Serious: Yes (Hospitalization)
  Sender: FDA-Public Use
  Company Number: STA-AE-04-MTX-149

PATIENT
  Age: 87 Year
  Sex: Female

DRUGS (4)
  1. RHEUMATREX [Suspect]
     Indication: RHEUMATOID ARTHRITIS
     Dosage: 4 MG 1X PER 1 WK, ORAL
     Route: 048
     Dates: start: 20030917, end: 20040324
  2. WARFARIN SODIUM [Concomitant]
  3. ACECOL (TEMOCAPRIL HYDROCHLORIDE) [Concomitant]
  4. TAGAMET [Concomitant]

REACTIONS (3)
  - EYELID OEDEMA [None]
  - NASOPHARYNGITIS [None]
  - PLEURAL EFFUSION [None]
